FAERS Safety Report 19810166 (Version 3)
Quarter: 2021Q4

REPORT INFORMATION
  Report Type: Spontaneous
  Country: US (occurrence: US)
  Receive Date: 20210908
  Receipt Date: 20211129
  Transmission Date: 20220303
  Serious: No
  Sender: FDA-Public Use
  Company Number: US-SANOFI-00751978

PATIENT
  Age: 73 Year
  Sex: Male

DRUGS (2)
  1. LANTUS SOLOSTAR [Suspect]
     Active Substance: INSULIN GLARGINE
     Dosage: UNK
     Route: 065
  2. LANTUS SOLOSTAR [Suspect]
     Active Substance: INSULIN GLARGINE
     Dosage: UNK(/NOT SURE HOW MUCH INSULIN HE RECEIVED/INCORRECT DOSE)
     Route: 065

REACTIONS (3)
  - Blood glucose abnormal [Unknown]
  - Incorrect dose administered by device [Unknown]
  - Device operational issue [Unknown]
